FAERS Safety Report 6822904-2 (Version None)
Quarter: 2010Q3

REPORT INFORMATION
  Report Type: 
  Country: None (occurrence: None)
  Receive Date: 20100708
  Receipt Date: 20100707
  Transmission Date: 20110219
  Serious: Yes (Hospitalization, Other)
  Sender: FDA-Public Use
  Company Number: GXKR2010DE07484

PATIENT
  Sex: Female

DRUGS (1)
  1. MTX HEXAL (NGX) [Suspect]
     Indication: PSORIASIS
     Dosage: 15 MG, UNK
     Route: 048
     Dates: start: 20090907

REACTIONS (3)
  - INTERVERTEBRAL DISC OPERATION [None]
  - INTERVERTEBRAL DISC PROTRUSION [None]
  - MOVEMENT DISORDER [None]
